FAERS Safety Report 24060279 (Version 2)
Quarter: 2024Q3

REPORT INFORMATION
  Report Type: Spontaneous
  Country: JP (occurrence: JP)
  Receive Date: 20240708
  Receipt Date: 20240719
  Transmission Date: 20241016
  Serious: Yes (Hospitalization)
  Sender: RIGEL PHARMACEUTICALS
  Company Number: JP-KISSEI-TL20240305_P_1

PATIENT
  Sex: Male

DRUGS (4)
  1. TAVALISSE [Suspect]
     Active Substance: FOSTAMATINIB
     Route: 048
     Dates: start: 20240707
  2. TAVALISSE [Suspect]
     Active Substance: FOSTAMATINIB
     Indication: Product used for unknown indication
  3. ELTROMBOPAG OLAMINE [Concomitant]
     Active Substance: ELTROMBOPAG OLAMINE
     Dosage: UNK
     Route: 048
  4. ELTROMBOPAG OLAMINE [Concomitant]
     Active Substance: ELTROMBOPAG OLAMINE
     Indication: Product used for unknown indication

REACTIONS (1)
  - Pneumonia [Unknown]
